FAERS Safety Report 19004993 (Version 1)
Quarter: 2021Q1

REPORT INFORMATION
  Report Type: Report from Study
  Country: ZA (occurrence: ZA)
  Receive Date: 20210312
  Receipt Date: 20210312
  Transmission Date: 20210420
  Serious: Yes (Death, Other)
  Sender: FDA-Public Use
  Company Number: NVSC2021ZA048807

PATIENT
  Age: 80 Year
  Sex: Female
  Weight: 77.5 kg

DRUGS (2)
  1. RYDAPT [Suspect]
     Active Substance: MIDOSTAURIN
     Indication: MASTOCYTIC LEUKAEMIA
  2. RYDAPT [Suspect]
     Active Substance: MIDOSTAURIN
     Indication: SYSTEMIC MASTOCYTOSIS
     Dosage: 50 MG, BID (D8?D21)
     Route: 048
     Dates: start: 20200203, end: 20200521

REACTIONS (5)
  - Treatment failure [Unknown]
  - Death [Fatal]
  - Mastocytic leukaemia [Unknown]
  - Systemic mastocytosis [Unknown]
  - Malignant neoplasm progression [Unknown]

NARRATIVE: CASE EVENT DATE: 20200813
